FAERS Safety Report 7202951-1 (Version None)
Quarter: 2010Q4

REPORT INFORMATION
  Report Type: 
  Country: None (occurrence: None)
  Receive Date: 20101229
  Receipt Date: 20101224
  Transmission Date: 20110411
  Serious: Yes (Hospitalization)
  Sender: FDA-Public Use
  Company Number: NL-ABBOTT-10P-114-0661940-00

PATIENT
  Sex: Male
  Weight: 89 kg

DRUGS (15)
  1. HUMIRA [Suspect]
     Indication: RHEUMATOID ARTHRITIS
     Route: 058
     Dates: start: 20090805, end: 20091001
  2. HUMIRA [Suspect]
     Route: 058
     Dates: end: 20100101
  3. HUMIRA [Suspect]
     Route: 058
     Dates: start: 20100201, end: 20100301
  4. HUMIRA [Suspect]
     Route: 058
     Dates: start: 20100501
  5. DICLOFENAC SODIUM [Concomitant]
     Indication: PAIN
     Route: 048
     Dates: start: 20100101
  6. FOLIC ACID [Concomitant]
     Indication: SUPPLEMENTATION THERAPY
     Dates: start: 20080101
  7. METHOTREXATE [Concomitant]
     Indication: RHEUMATOID ARTHRITIS
     Dates: start: 20080101
  8. MONTELUKAST [Concomitant]
     Indication: CHRONIC OBSTRUCTIVE PULMONARY DISEASE
     Dosage: AT NIGHT
     Route: 048
     Dates: start: 20050101
  9. OMEPRAZOLE [Concomitant]
     Indication: GASTRIC DISORDER
     Route: 048
     Dates: start: 20100101
  10. OMEPRAZOLE [Concomitant]
     Indication: PROPHYLAXIS
  11. PANTOPRAZOLE [Concomitant]
     Indication: GASTRIC DISORDER
     Dosage: MSR
     Route: 048
     Dates: end: 20091201
  12. PANTOPRAZOLE [Concomitant]
     Indication: PROPHYLAXIS
  13. PARACETAMOL [Concomitant]
     Indication: PRODUCT USED FOR UNKNOWN INDICATION
     Dosage: AS NEEDED
  14. PREDNISOLONE [Concomitant]
     Indication: PRODUCT USED FOR UNKNOWN INDICATION
     Dates: start: 20100101, end: 20100101
  15. SALBUTAMOL [Concomitant]
     Indication: CHRONIC OBSTRUCTIVE PULMONARY DISEASE
     Dosage: 100MCG/DOSE200 DOSE VOLUME AS NEEDED
     Dates: start: 19950101

REACTIONS (3)
  - FATIGUE [None]
  - PLEURISY [None]
  - PNEUMONIA [None]
